FAERS Safety Report 13057903 (Version 2)
Quarter: 2017Q1

REPORT INFORMATION
  Report Type: Spontaneous
  Country: US (occurrence: US)
  Receive Date: 20161223
  Receipt Date: 20170117
  Transmission Date: 20170428
  Serious: No
  Sender: FDA-Public Use
  Company Number: US-ELI_LILLY_AND_COMPANY-US201612007415

PATIENT
  Sex: Male

DRUGS (2)
  1. CIALIS [Suspect]
     Active Substance: TADALAFIL
     Dosage: 20 MG, QOD
     Route: 065
  2. CIALIS [Suspect]
     Active Substance: TADALAFIL
     Indication: POST PROCEDURAL COMPLICATION
     Dosage: 5 MG, QD
     Route: 065

REACTIONS (2)
  - Overdose [Unknown]
  - Off label use [Unknown]
